FAERS Safety Report 5095182-5 (Version None)
Quarter: 2006Q3

REPORT INFORMATION
  Report Type: 
  Country: None (occurrence: None)
  Receive Date: 20060901
  Receipt Date: 20060629
  Transmission Date: 20061208
  Serious: Yes (Hospitalization)
  Sender: FDA-Public Use
  Company Number: 444

PATIENT
  Age: 59 Year
  Sex: Female
  Weight: 48.6 kg

DRUGS (8)
  1. FLOLAN [Suspect]
     Indication: PULMONARY HYPERTENSION
     Route: 042
  2. TYLENOL [Concomitant]
     Route: 048
  3. LASIX [Concomitant]
     Dosage: 80MG TWICE PER DAY
     Route: 048
     Dates: start: 20060608
  4. MS CONTIN [Concomitant]
     Indication: PAIN
     Dosage: 15MG TWICE PER DAY
     Route: 048
     Dates: start: 20060608
  5. COUMADIN [Concomitant]
     Dosage: 7.5MG PER DAY
     Route: 048
     Dates: start: 20060608
  6. DOCUSATE SODIUM [Concomitant]
     Indication: DIARRHOEA
     Dosage: 100MG AS REQUIRED
     Route: 048
  7. LISINOPRIL [Concomitant]
     Indication: BLOOD PRESSURE
     Dosage: 2.5MG PER DAY
     Route: 048
  8. SIMETHICON [Concomitant]
     Indication: FLATULENCE
     Dosage: 80MG PER DAY
     Route: 048

REACTIONS (4)
  - FLUSHING [None]
  - MEDICATION ERROR [None]
  - PAIN IN JAW [None]
  - PHARMACEUTICAL PRODUCT COMPLAINT [None]
